FAERS Safety Report 7248137-6 (Version None)
Quarter: 2011Q1

REPORT INFORMATION
  Report Type: 
  Country: None (occurrence: None)
  Receive Date: 20110127
  Receipt Date: 20110121
  Transmission Date: 20110831
  Serious: Yes (Other)
  Sender: FDA-Public Use
  Company Number: CHPA2011US01496

PATIENT
  Age: 72 Year
  Sex: Female

DRUGS (8)
  1. VOLTAREN [Suspect]
     Indication: BURSITIS
     Dosage: 2 G, QID
     Route: 061
     Dates: start: 20110114, end: 20110115
  2. TRAZODONE [Concomitant]
     Dosage: 3/4 A DAY
     Route: 048
  3. OMEPRAZOLE [Concomitant]
     Indication: GASTRIC PH DECREASED
     Dosage: 1 DF, ONCE A DAY, PRN
     Route: 048
  4. TYLENOL-500 [Concomitant]
     Dosage: 2 DF, ONCE A DAY, PRN
     Route: 048
  5. VITAMIN D [Concomitant]
     Dosage: 1 DF, QD
     Route: 048
  6. ALPRAZOLAM [Concomitant]
     Dosage: 0.5 DF, PRN
     Route: 048
  7. TRIAZOLAM [Concomitant]
     Indication: INSOMNIA
     Dosage: 1 DF ONCE A DAY, PRN
     Route: 048
  8. ATENOLOL [Concomitant]
     Dosage: 3/4 IN MORNING AND 1/2 IN EVENING
     Route: 048

REACTIONS (9)
  - HEADACHE [None]
  - GLOSSODYNIA [None]
  - URTICARIA [None]
  - THERAPEUTIC RESPONSE UNEXPECTED [None]
  - TINNITUS [None]
  - DRUG ADMINISTERED AT INAPPROPRIATE SITE [None]
  - OFF LABEL USE [None]
  - THROAT IRRITATION [None]
  - EAR PAIN [None]
